FAERS Safety Report 8909208 (Version 2)
Quarter: 2012Q4

REPORT INFORMATION
  Report Type: 
  Country: GB (occurrence: None)
  Receive Date: 20121107
  Receipt Date: 20121128
  Transmission Date: 20130627
  Serious: Yes (Other)
  Sender: FDA-Public Use
  Company Number: AUR-APL-2012-04574

PATIENT
  Age: 33 Year
  Sex: Female

DRUGS (1)
  1. AMOXICILLIN (AMOXICILLIN) [Suspect]
     Indication: DRUG USE FOR UNKNOWN INDICATION

REACTIONS (10)
  - Erythema [None]
  - Drug hypersensitivity [None]
  - Pruritus [None]
  - Swelling face [None]
  - Local swelling [None]
  - Pharyngeal oedema [None]
  - Dyspnoea [None]
  - Syncope [None]
  - Fall [None]
  - Vomiting [None]
